FAERS Safety Report 10031658 (Version 4)
Quarter: 2014Q2

REPORT INFORMATION
  Report Type: Report from Study
  Country: US (occurrence: US)
  Receive Date: 20140324
  Receipt Date: 20140402
  Transmission Date: 20141212
  Serious: Yes (Hospitalization)
  Sender: FDA-Public Use
  Company Number: US-UCBSA-114781

PATIENT
  Age: 31 Year
  Sex: Female
  Weight: 58.18 kg

DRUGS (15)
  1. CIMZIA [Suspect]
     Indication: CROHN^S DISEASE
     Route: 058
     Dates: start: 20130815, end: 2013
  2. CIMZIA [Suspect]
     Indication: CROHN^S DISEASE
     Route: 058
     Dates: start: 201309, end: 201312
  3. AMLODIPINE [Concomitant]
  4. INFLUENZA [Concomitant]
     Dosage: 0.5 ML, ONCE
     Route: 030
  5. VITAMIN B12 [Concomitant]
     Indication: VITAMIN SUPPLEMENTATION
     Route: 048
     Dates: start: 201311
  6. FERROUS SULFATE [Concomitant]
     Indication: VITAMIN SUPPLEMENTATION
     Route: 048
     Dates: start: 201311
  7. HYDROCODONE ACETAMINOPHEN [Concomitant]
     Indication: PAIN
     Dosage: 10 -325 MG ONCE Q6H
     Route: 048
     Dates: start: 201311
  8. MAGNESIUM OXIDE [Concomitant]
     Indication: MINERAL SUPPLEMENTATION
     Route: 048
     Dates: start: 201311
  9. PROMETHAZINE [Concomitant]
     Indication: NAUSEA
     Dosage: 25 MG ONCE IN 6 HOUR AS NEEDED
     Route: 048
  10. AMITRIPTYLINE [Concomitant]
     Indication: HEADACHE
     Dosage: ONCE AT QHS
     Route: 048
     Dates: start: 201311
  11. HYDROCORTISONE [Concomitant]
     Indication: PROCTALGIA
     Dosage: 1 % TWICE DAILY
     Route: 061
     Dates: start: 201311
  12. HYDROMORPHONE [Concomitant]
     Dosage: 4 MG Q4HPRN
     Dates: start: 201311
  13. PANTOPRAZOLE [Concomitant]
     Indication: GASTROOESOPHAGEAL REFLUX DISEASE
     Route: 048
     Dates: start: 201311
  14. 6-MP [Concomitant]
     Indication: CROHN^S DISEASE
  15. INFLIXIMAB [Concomitant]
     Indication: CROHN^S DISEASE
     Dates: start: 2004, end: 2013

REACTIONS (1)
  - Crohn^s disease [Recovered/Resolved]
